FAERS Safety Report 10747331 (Version 2)
Quarter: 2015Q1

REPORT INFORMATION
  Report Type: Report from Study
  Country: NL (occurrence: NL)
  Receive Date: 20150129
  Receipt Date: 20150209
  Transmission Date: 20150721
  Serious: Yes (Death, Other)
  Sender: FDA-Public Use
  Company Number: NL-AMGEN-NLDSL2015007524

PATIENT
  Age: 85 Year
  Sex: Male

DRUGS (2)
  1. FIRMAGON [Concomitant]
     Active Substance: DEGARELIX ACETATE
  2. XGEVA [Suspect]
     Active Substance: DENOSUMAB
     Indication: PROPHYLAXIS
     Dosage: 1.7 ML (70MG/ML), Q4WK
     Route: 058
     Dates: start: 20131202, end: 20150204

REACTIONS (2)
  - Hospice care [Unknown]
  - Death [Fatal]

NARRATIVE: CASE EVENT DATE: 20150120
